FAERS Safety Report 8756717 (Version 1)
Quarter: 2012Q4

REPORT INFORMATION
  Report Type: 
  Country: AU (occurrence: AU)
  Receive Date: 20120828
  Receipt Date: 20120828
  Transmission Date: 20130627
  Serious: Yes (Hospitalization, Other)
  Sender: FDA-Public Use
  Company Number: PHHY2012AU073539

PATIENT
  Sex: Female

DRUGS (21)
  1. ACLASTA [Suspect]
     Route: 042
  2. LACRI-LUBE S.O.P. [Concomitant]
  3. REFRESH TEARS PLUS [Concomitant]
  4. XALATAN [Concomitant]
     Dosage: 1 DF, 1 Drop nocte both eyes
  5. ASPIRIN [Concomitant]
     Dosage: 1 DF, QD
  6. OMEGA-3 [Concomitant]
     Dosage: 1 DF, QD
  7. BIOGLAN [Concomitant]
     Dosage: 1 DF, QD
  8. BENEFIBER [Concomitant]
  9. SALICYLIC ACID [Concomitant]
  10. VITAMIN D [Concomitant]
     Dosage: 1 DF, QMO
  11. OROXINE [Concomitant]
     Dosage: 1 DF, QD
  12. NASONEX [Concomitant]
     Dosage: 1 DF, QD
  13. PANAMAX [Concomitant]
     Dosage: 2 DF, tds
  14. ACCUPRIL [Concomitant]
  15. CALTRATE [Concomitant]
     Dosage: 1 DF, nocte
  16. PANADEINE FORTE [Concomitant]
     Dosage: 0.5 DF, QD
  17. AUGMENTIN DUO FORTE [Concomitant]
  18. OXYTOCIN [Concomitant]
     Route: 048
  19. COLOXYL [Concomitant]
  20. SENNA [Concomitant]
  21. MORPHINE [Concomitant]
     Dosage: 10 mg, UNK
     Route: 042

REACTIONS (5)
  - Lumbar vertebral fracture [Unknown]
  - Fractured sacrum [Unknown]
  - Weight bearing difficulty [Unknown]
  - Arthralgia [Unknown]
  - Blood sodium decreased [None]
